FAERS Safety Report 5445173-7 (Version None)
Quarter: 2007Q3

REPORT INFORMATION
  Report Type: 
  Country: None (occurrence: None)
  Receive Date: 20070730
  Receipt Date: 20070529
  Transmission Date: 20080115
  Serious: Yes (Other)
  Sender: FDA-Public Use
  Company Number: 239624

PATIENT
  Age: 67 Year
  Sex: Female
  Weight: 49 kg

DRUGS (5)
  1. RITUXAN [Suspect]
     Dosage: INTRAVENOUS
     Route: 042
     Dates: start: 20070301
  2. RITUXAN [Suspect]
     Dosage: INTRAVENOUS
     Route: 042
     Dates: start: 20070403
  3. METHOTREXATE [Concomitant]
  4. FLEXERIL [Concomitant]
  5. MEDICATION (UNK INGREDIENT) (GENERICA COMPONENTS) [Concomitant]

REACTIONS (1)
  - STAPHYLOCOCCAL INFECTION [None]
